FAERS Safety Report 5029382-7 (Version None)
Quarter: 2006Q2

REPORT INFORMATION
  Report Type: 
  Country: None (occurrence: None)
  Receive Date: 20060614
  Receipt Date: 20060526
  Transmission Date: 20061013
  Serious: Yes (Other)
  Sender: FDA-Public Use
  Company Number: USA030435823

PATIENT
  Age: 56 Year
  Sex: Female

DRUGS (9)
  1. FORTEO [Suspect]
     Indication: OSTEOPOROSIS
     Dosage: 20 UG, DAILY (1/D)
     Dates: start: 20030425, end: 20050301
  2. FORTEO PEN (FORTEO PEN) [Concomitant]
  3. DEMEROL [Concomitant]
  4. ACETAMINOPHEN [Concomitant]
  5. PREMARIN [Concomitant]
  6. ZYRTEC [Concomitant]
  7. MULTI-VITAMINS [Concomitant]
  8. ASPIRIN [Concomitant]
  9. MORPHINE [Concomitant]

REACTIONS (19)
  - ALOPECIA [None]
  - BLOOD PRESSURE INCREASED [None]
  - BONE DENSITY DECREASED [None]
  - CONTUSION [None]
  - DIFFICULTY IN WALKING [None]
  - EYE DISORDER [None]
  - FALL [None]
  - FATIGUE [None]
  - HEADACHE [None]
  - HEART RATE INCREASED [None]
  - HYPERSENSITIVITY [None]
  - HYPOTRICHOSIS [None]
  - INJECTION SITE PAIN [None]
  - NASOPHARYNGITIS [None]
  - OCULAR HYPERAEMIA [None]
  - PHARMACEUTICAL PRODUCT COMPLAINT [None]
  - POLLAKIURIA [None]
  - SARCOIDOSIS [None]
  - VITAMIN D DECREASED [None]
